FAERS Safety Report 9791942 (Version 1)
Quarter: 2014Q1

REPORT INFORMATION
  Report Type: Spontaneous
  Country: US (occurrence: US)
  Receive Date: 20140102
  Receipt Date: 20140102
  Transmission Date: 20141002
  Serious: No
  Sender: FDA-Public Use
  Company Number: US-PFIZER INC-2013374744

PATIENT
  Age: 61 Year
  Sex: Male
  Weight: 97.51 kg

DRUGS (5)
  1. CHANTIX [Suspect]
     Indication: SMOKING CESSATION THERAPY
     Dosage: UNK
     Dates: start: 2012
  2. CHANTIX [Suspect]
     Dosage: UNK
     Dates: start: 2013, end: 201312
  3. FENOFIBRATE [Concomitant]
     Indication: BLOOD CHOLESTEROL ABNORMAL
     Dosage: 165 MG, DAILY
  4. LISINOPRIL [Concomitant]
     Dosage: 10 MG, DAILY
  5. METFORMIN [Concomitant]
     Indication: DIABETES MELLITUS
     Dosage: 2000 MG, 2X/DAY

REACTIONS (6)
  - Drug ineffective [Unknown]
  - Nightmare [Unknown]
  - Insomnia [Unknown]
  - Hostility [Unknown]
  - Joint swelling [Unknown]
  - Swelling face [Unknown]
